FAERS Safety Report 8414876-4 (Version None)
Quarter: 2012Q2

REPORT INFORMATION
  Report Type: 
  Country: None (occurrence: None)
  Receive Date: 20120606
  Receipt Date: 20120529
  Transmission Date: 20120825
  Serious: Yes (Hospitalization, Other)
  Sender: FDA-Public Use
  Company Number: US-ASTRAZENECA-2011SE33568

PATIENT
  Age: 46 Year
  Sex: Female

DRUGS (17)
  1. NEXIUM [Suspect]
     Indication: GASTROOESOPHAGEAL REFLUX DISEASE
     Dosage: DAILY
     Route: 048
     Dates: start: 20030101
  2. NEXIUM [Suspect]
     Route: 048
     Dates: start: 20061103
  3. VITAMINE C [Concomitant]
  4. ECHINECEA [Concomitant]
  5. MAXALT [Concomitant]
     Dates: start: 20060821
  6. IBUPROFEN [Concomitant]
  7. BIOIDENTICAL THYROID [Concomitant]
  8. LEVROTHYROXSINE [Concomitant]
     Indication: HYPOTHYROIDISM
  9. MAXALT [Concomitant]
     Dosage: 10 MG  1 TABLET AS NEEDED
  10. MAGNESIUM [Concomitant]
  11. VITAMIN B-12 [Concomitant]
  12. RAMIPRIL [Concomitant]
  13. RAMIPRIL [Concomitant]
     Dates: start: 20060913
  14. NEXIUM [Suspect]
     Route: 048
     Dates: start: 20030101, end: 20110101
  15. BIOIDENTICAL PROGESTERONE [Concomitant]
     Dosage: 100MG 1 EVERY DAY FOR 10 DAYS A MONTH
  16. LOVAZA [Concomitant]
     Dosage: TWO CAPSULES A DAY
  17. VITAMIN D [Concomitant]

REACTIONS (10)
  - OSTEOPOROSIS [None]
  - LOWER LIMB FRACTURE [None]
  - PARAESTHESIA [None]
  - PATELLA FRACTURE [None]
  - POST PROCEDURAL INFECTION [None]
  - ILIOTIBIAL BAND SYNDROME [None]
  - TIBIA FRACTURE [None]
  - ARTHRALGIA [None]
  - HYPOAESTHESIA [None]
  - FALL [None]
